FAERS Safety Report 23180456 (Version 1)
Quarter: 2023Q4

REPORT INFORMATION
  Report Type: Other
  Country: GB (occurrence: None)
  Receive Date: 20231114
  Receipt Date: 20231114
  Transmission Date: 20240109
  Serious: Yes (Disabling)
  Sender: FDA-Public Use
  Company Number: GB-ROCHE-3456191

PATIENT
  Age: 28 Year
  Sex: Male

DRUGS (1)
  1. OCRELIZUMAB [Suspect]
     Active Substance: OCRELIZUMAB
     Indication: Multiple sclerosis
     Dosage: BATCH NUMBER NOT AVAILABLE ;ONGOING: YES
     Route: 041

REACTIONS (11)
  - Optic neuritis [Unknown]
  - Urinary incontinence [Not Recovered/Not Resolved]
  - Influenza like illness [Not Recovered/Not Resolved]
  - Mobility decreased [Unknown]
  - Malaise [Unknown]
  - Malaise [Unknown]
  - Nasal congestion [Unknown]
  - Fatigue [Unknown]
  - Malaise [Unknown]
  - Sputum discoloured [Unknown]
  - Visual impairment [Unknown]

NARRATIVE: CASE EVENT DATE: 20231106
